FAERS Safety Report 16022823 (Version 6)
Quarter: 2020Q1

REPORT INFORMATION
  Report Type: Spontaneous
  Country: US (occurrence: US)
  Receive Date: 20190301
  Receipt Date: 20200110
  Transmission Date: 20200409
  Serious: Yes (Other)
  Sender: FDA-Public Use
  Company Number: US-PFIZER INC-2019090304

PATIENT
  Age: 68 Year
  Sex: Female

DRUGS (2)
  1. FEMARA [Concomitant]
     Active Substance: LETROZOLE
     Dosage: UNK, DAILY
     Route: 048
  2. IBRANCE [Suspect]
     Active Substance: PALBOCICLIB
     Indication: BREAST CANCER FEMALE
     Dosage: 125 MG, CYCLIC (TAKE 1 CAPSULE FOR 21 DAYS, THEN 7 DAYS OFF EVERY 28 DAYS)
     Route: 048
     Dates: start: 20190214

REACTIONS (12)
  - Constipation [Unknown]
  - Pain in extremity [Unknown]
  - Fall [Unknown]
  - Sinusitis [Unknown]
  - Thrombosis [Unknown]
  - Vitreous floaters [Recovered/Resolved]
  - Pyrexia [Unknown]
  - Dry skin [Unknown]
  - White blood cell count decreased [Unknown]
  - Nausea [Unknown]
  - Skin exfoliation [Unknown]
  - Joint swelling [Unknown]

NARRATIVE: CASE EVENT DATE: 2019
